FAERS Safety Report 21225474 (Version 1)
Quarter: 2022Q3

REPORT INFORMATION
  Report Type: Spontaneous
  Country: JP (occurrence: JP)
  Receive Date: 20220818
  Receipt Date: 20220818
  Transmission Date: 20221027
  Serious: Yes (Hospitalization, Other)
  Sender: FDA-Public Use
  Company Number: JP-STRIDES ARCOLAB LIMITED-2022SP010293

PATIENT
  Age: 10 Month
  Sex: Male

DRUGS (9)
  1. PREDNISOLONE [Suspect]
     Active Substance: PREDNISOLONE
     Indication: Juvenile chronic myelomonocytic leukaemia
     Dosage: UNK
     Route: 065
  2. TACROLIMUS [Suspect]
     Active Substance: TACROLIMUS
     Indication: Juvenile chronic myelomonocytic leukaemia
     Dosage: UNK
     Route: 065
  3. TACROLIMUS [Suspect]
     Active Substance: TACROLIMUS
     Indication: Haematopoietic stem cell mobilisation
  4. BUSULFAN [Suspect]
     Active Substance: BUSULFAN
     Indication: Juvenile chronic myelomonocytic leukaemia
     Dosage: 1.2 MILLIGRAM/SQ. METER
     Route: 065
  5. FLUDARABINE [Suspect]
     Active Substance: FLUDARABINE PHOSPHATE
     Indication: Juvenile chronic myelomonocytic leukaemia
     Dosage: 30 MILLIGRAM/SQ. METER
     Route: 065
  6. FLUDARABINE [Suspect]
     Active Substance: FLUDARABINE PHOSPHATE
     Dosage: UNK, PRETREATMENT
     Route: 065
  7. MELPHALAN [Suspect]
     Active Substance: MELPHALAN
     Indication: Juvenile chronic myelomonocytic leukaemia
     Dosage: 90 MILLIGRAM/SQ. METER
     Route: 065
  8. MELPHALAN [Suspect]
     Active Substance: MELPHALAN
     Dosage: UNK, PRETREATMENT
     Route: 065
  9. MERCAPTOPURINE [Suspect]
     Active Substance: MERCAPTOPURINE
     Indication: Juvenile chronic myelomonocytic leukaemia
     Dosage: 50 MILLIGRAM/SQ. METER
     Route: 065

REACTIONS (8)
  - Hyperammonaemia [Recovered/Resolved]
  - Respiratory alkalosis [Recovered/Resolved]
  - Pulmonary hypertension [Unknown]
  - Nephrotic syndrome [Recovered/Resolved]
  - Renal tubular disorder [Recovered/Resolved]
  - Pneumonia cytomegaloviral [Recovered/Resolved]
  - Hypertension [Unknown]
  - Off label use [Unknown]
